FAERS Safety Report 8084769-3 (Version None)
Quarter: 2012Q1

REPORT INFORMATION
  Report Type: 
  Country: None (occurrence: None)
  Receive Date: 20120128
  Receipt Date: 20110326
  Transmission Date: 20120608
  Serious: No
  Sender: FDA-Public Use
  Company Number: US-ABBOTT-11P-163-0714634-00

PATIENT
  Age: 57 Year
  Sex: Male

DRUGS (4)
  1. CIPROFLOXACIN [Concomitant]
     Indication: CROHN'S DISEASE
  2. METRONIDAZOLE [Concomitant]
     Indication: CROHN'S DISEASE
  3. HUMIRA [Suspect]
     Indication: CROHN'S DISEASE
     Dates: start: 20110218
  4. TRAMADOL HCL [Concomitant]
     Indication: PAIN

REACTIONS (2)
  - JOINT SWELLING [None]
  - ARTHRALGIA [None]
